FAERS Safety Report 20798361 (Version 1)
Quarter: 2022Q2

REPORT INFORMATION
  Report Type: Spontaneous
  Country: CA (occurrence: None)
  Receive Date: 20220507
  Receipt Date: 20220507
  Transmission Date: 20220721
  Serious: Yes (Other)
  Sender: FDA-Public Use
  Company Number: CA-ROCHE-3089813

PATIENT
  Age: 78 Year
  Sex: Female

DRUGS (5)
  1. RITUXIMAB [Suspect]
     Active Substance: RITUXIMAB
     Indication: Product used for unknown indication
     Route: 065
  2. ELTROMBOPAG OLAMINE [Suspect]
     Active Substance: ELTROMBOPAG OLAMINE
     Indication: Immune thrombocytopenia
     Route: 048
  3. ELTROMBOPAG OLAMINE [Suspect]
     Active Substance: ELTROMBOPAG OLAMINE
     Route: 048
  4. CIPROFLOXACIN [Concomitant]
     Active Substance: CIPROFLOXACIN
  5. METRONIDAZOLE [Concomitant]
     Active Substance: METRONIDAZOLE

REACTIONS (7)
  - Decreased appetite [Unknown]
  - Diverticulitis [Unknown]
  - Drug ineffective [Unknown]
  - Fatigue [Unknown]
  - Feeling abnormal [Unknown]
  - Platelet count decreased [Unknown]
  - Weight decreased [Unknown]
